FAERS Safety Report 4455976-3 (Version None)
Quarter: 2004Q3

REPORT INFORMATION
  Report Type: 
  Country: None (occurrence: None)
  Receive Date: 20040920
  Receipt Date: 20040909
  Transmission Date: 20050211
  Serious: Yes (Other)
  Sender: FDA-Public Use
  Company Number: HQWYE984210SEP04

PATIENT
  Age: 77 Year
  Sex: Female

DRUGS (1)
  1. EFFEXOR XR [Suspect]
     Dosage: ^37 MG^ DAILY
     Route: 048
     Dates: start: 20040206, end: 20040223

REACTIONS (2)
  - CONDITION AGGRAVATED [None]
  - HYPONATRAEMIA [None]
